FAERS Safety Report 12242525 (Version 3)
Quarter: 2016Q2

REPORT INFORMATION
  Report Type: Spontaneous
  Country: JP (occurrence: JP)
  Receive Date: 20160406
  Receipt Date: 20160429
  Transmission Date: 20160815
  Serious: Yes (Other)
  Sender: FDA-Public Use
  Company Number: JP-BAYER-2016-058110

PATIENT
  Age: 47 Year
  Sex: Female
  Weight: 76 kg

DRUGS (13)
  1. CLOPIDOGREL [Interacting]
     Active Substance: CLOPIDOGREL BISULFATE
     Indication: EMBOLISM
     Dosage: UNK
     Route: 048
  2. HEPARIN [Interacting]
     Active Substance: HEPARIN SODIUM
     Indication: EMBOLISM
  3. PLAVIX [Suspect]
     Active Substance: CLOPIDOGREL BISULFATE
     Indication: ANEURYSM
     Dosage: UNK
     Route: 048
     Dates: start: 20150901
  4. BAYASPIRIN [Suspect]
     Active Substance: ASPIRIN
     Indication: THROMBOSIS PROPHYLAXIS
  5. HEPARIN [Suspect]
     Active Substance: HEPARIN SODIUM
     Indication: EMBOLISM
     Dosage: 15000 U, QD
     Dates: start: 20150828, end: 20150831
  6. BAYASPIRIN [Suspect]
     Active Substance: ASPIRIN
     Indication: EMBOLISM
     Dosage: 100 MG, QD
     Route: 048
     Dates: start: 20150824, end: 20150831
  7. HEPARIN [Suspect]
     Active Substance: HEPARIN SODIUM
     Indication: ANEURYSM
  8. PLAVIX [Suspect]
     Active Substance: CLOPIDOGREL BISULFATE
     Indication: EMBOLISM
     Dosage: 75 MG, QD
     Route: 048
     Dates: start: 20150824, end: 20150831
  9. MICARDIS [Concomitant]
     Active Substance: TELMISARTAN
     Indication: HYPERTENSION
     Dosage: 80 MG, QD
     Route: 048
     Dates: start: 20150828
  10. AMLODIPINE [Concomitant]
     Active Substance: AMLODIPINE BESYLATE
     Indication: HYPERTENSION
     Dosage: 10 MG, QD
     Route: 048
     Dates: start: 20150826
  11. MICARDIS [Concomitant]
     Active Substance: TELMISARTAN
     Indication: HYPERTENSION
     Dosage: 40 MG, QD
     Route: 048
     Dates: start: 20150826, end: 20150827
  12. LANSOPRAZOLE. [Concomitant]
     Active Substance: LANSOPRAZOLE
     Dosage: 15 MG, QD
     Route: 048
     Dates: start: 20150827
  13. PROTAMINE SULFATE. [Concomitant]
     Active Substance: PROTAMINE SULFATE
     Dosage: UNK

REACTIONS (4)
  - Ovarian cyst torsion [None]
  - Intra-abdominal haemorrhage [Recovered/Resolved]
  - Ovarian haemorrhage [Recovered/Resolved]
  - Labelled drug-drug interaction medication error [None]

NARRATIVE: CASE EVENT DATE: 20150831
